FAERS Safety Report 5190029-0 (Version None)
Quarter: 2006Q4

REPORT INFORMATION
  Report Type: 
  Country: None (occurrence: None)
  Receive Date: 20061215
  Receipt Date: 20061206
  Transmission Date: 20070319
  Serious: Yes (Other)
  Sender: FDA-Public Use
  Company Number: 2006SP004294

PATIENT
  Age: 28 Year
  Sex: Male
  Weight: 85 kg

DRUGS (3)
  1. INTRON A [Suspect]
     Indication: MALIGNANT MELANOMA
     Dosage: SEE IMAGE
     Route: 042
     Dates: start: 20060508, end: 20060526
  2. INTRON A [Suspect]
     Indication: MALIGNANT MELANOMA
     Dosage: SEE IMAGE
     Route: 042
     Dates: end: 20060904
  3. ACETAMINOPHEN [Concomitant]

REACTIONS (3)
  - BLOOD OSMOLARITY INCREASED [None]
  - BLOOD PHOSPHORUS DECREASED [None]
  - DIABETES INSIPIDUS [None]
